FAERS Safety Report 9910267 (Version 1)
Quarter: 2014Q1

REPORT INFORMATION
  Report Type: Spontaneous
  Country: DE (occurrence: DE)
  Receive Date: 20140219
  Receipt Date: 20140219
  Transmission Date: 20141002
  Serious: Yes (Hospitalization, Other)
  Sender: FDA-Public Use
  Company Number: DE-ACORDA-ACO_101829_2014

PATIENT
  Sex: Female

DRUGS (4)
  1. FAMPYRA [Suspect]
     Indication: MULTIPLE SCLEROSIS
     Dosage: 10 MG, BID
     Route: 048
     Dates: start: 201310, end: 201401
  2. TIZANIDINE [Suspect]
     Indication: MULTIPLE SCLEROSIS
     Dosage: 4 MG, TID
     Route: 048
     Dates: start: 201310, end: 201401
  3. EMSELEX [Suspect]
     Indication: MULTIPLE SCLEROSIS
     Dosage: 7.5 MG, QD
     Route: 048
     Dates: start: 201310, end: 201401
  4. GILENYA [Suspect]
     Indication: MULTIPLE SCLEROSIS
     Dosage: 0.5 MG, QD
     Route: 048
     Dates: start: 201310, end: 201401

REACTIONS (1)
  - Drug-induced liver injury [Not Recovered/Not Resolved]
